FAERS Safety Report 7519079-3 (Version None)
Quarter: 2011Q2

REPORT INFORMATION
  Report Type: 
  Country: None (occurrence: None)
  Receive Date: 20110602
  Receipt Date: 20110523
  Transmission Date: 20111010
  Serious: Yes (Disabling)
  Sender: FDA-Public Use
  Company Number: US-ROCHE-775549

PATIENT
  Age: 64 Year
  Sex: Male

DRUGS (2)
  1. PEMETREXED [Concomitant]
     Dates: start: 20100610
  2. AVASTIN [Suspect]
     Route: 042
     Dates: start: 20091127, end: 20100713

REACTIONS (1)
  - PULMONARY FIBROSIS [None]
